FAERS Safety Report 9174982 (Version 1)
Quarter: 2013Q1

REPORT INFORMATION
  Report Type: Spontaneous
  Country: JP (occurrence: JP)
  Receive Date: 20130320
  Receipt Date: 20130320
  Transmission Date: 20140127
  Serious: Yes (Other)
  Sender: FDA-Public Use
  Company Number: JP-PFIZER INC-2013087748

PATIENT
  Age: 14 Year
  Sex: 0

DRUGS (1)
  1. GENOTROPIN GOQUICK [Suspect]
     Route: 058

REACTIONS (1)
  - Visual acuity reduced [Unknown]
